FAERS Safety Report 8423607-3 (Version None)
Quarter: 2012Q2

REPORT INFORMATION
  Report Type: 
  Country: None (occurrence: None)
  Receive Date: 20120608
  Receipt Date: 20120329
  Transmission Date: 20120825
  Serious: Yes (Other)
  Sender: FDA-Public Use
  Company Number: DE-BAXTER-2012BH004681

PATIENT
  Age: 60 Year
  Sex: Female

DRUGS (4)
  1. PHYSIOSOL IN PLASTIC CONTAINER [Suspect]
     Route: 033
     Dates: start: 20080430
  2. NUTRINEAL [Suspect]
     Route: 033
     Dates: start: 20080430
  3. EXTRANEAL [Suspect]
     Route: 033
     Dates: start: 20080430
  4. NUTRINEAL [Suspect]
     Route: 033

REACTIONS (1)
  - PERITONITIS [None]
